FAERS Safety Report 9757306 (Version 1)
Quarter: 2013Q4

REPORT INFORMATION
  Report Type: Spontaneous
  Country: US (occurrence: US)
  Receive Date: 20131214
  Receipt Date: 20131214
  Transmission Date: 20140711
  Serious: No
  Sender: FDA-Public Use
  Company Number: US-B.I. PHARMACEUTICALS,INC./RIDGEFIELD-2013-BI-39615BP

PATIENT
  Age: 62 Year
  Sex: Female

DRUGS (2)
  1. MIRAPEX [Suspect]
     Dosage: 4.5 MG
     Route: 048
     Dates: start: 2013, end: 20131119
  2. MIRAPEX [Suspect]
     Dosage: 6 MG
     Route: 048
     Dates: start: 20131119

REACTIONS (2)
  - Intentional overdose [Not Recovered/Not Resolved]
  - Drug ineffective [Unknown]
